FAERS Safety Report 5415021-X (Version None)
Quarter: 2007Q3

REPORT INFORMATION
  Report Type: 
  Country: None (occurrence: None)
  Receive Date: 20070814
  Receipt Date: 20070814
  Transmission Date: 20080115
  Serious: Yes (Other)
  Sender: FDA-Public Use
  Company Number: None

PATIENT
  Sex: Male
  Weight: 84.369 kg

DRUGS (1)
  1. REVLIMID [Suspect]
     Indication: MULTIPLE MYELOMA
     Dosage: 25 MG DAILY PO
     Route: 048
     Dates: start: 20070621, end: 20070723

REACTIONS (3)
  - MALAISE [None]
  - METABOLIC ACIDOSIS [None]
  - RENAL TUBULAR ACIDOSIS [None]
